FAERS Safety Report 23271904 (Version 1)
Quarter: 2023Q4

REPORT INFORMATION
  Report Type: Spontaneous
  Country: CN (occurrence: CN)
  Receive Date: 20231207
  Receipt Date: 20231207
  Transmission Date: 20240110
  Serious: Yes (Hospitalization)
  Sender: FDA-Public Use
  Company Number: CN-Merck Healthcare KGaA-2023490854

PATIENT
  Age: 59 Year
  Sex: Male
  Weight: 53 kg

DRUGS (3)
  1. ERBITUX [Suspect]
     Active Substance: CETUXIMAB
     Indication: Laryngeal cancer
     Dosage: 400 MG, UNKNOWN
     Route: 041
     Dates: start: 20231117
  2. CISPLATIN [Suspect]
     Active Substance: CISPLATIN
     Indication: Laryngeal cancer
     Dosage: 30 MG, DAILY
     Route: 041
     Dates: start: 20231118, end: 20231121
  3. FLUOROURACIL [Suspect]
     Active Substance: FLUOROURACIL
     Indication: Laryngeal cancer
     Dosage: 1 G, DAILY
     Route: 041
     Dates: start: 20231118, end: 20231121

REACTIONS (1)
  - Myelosuppression [Unknown]

NARRATIVE: CASE EVENT DATE: 20231122
